FAERS Safety Report 9473361 (Version 1)
Quarter: 2013Q3

REPORT INFORMATION
  Report Type: Spontaneous
  Country: US (occurrence: US)
  Receive Date: 20130823
  Receipt Date: 20130823
  Transmission Date: 20140515
  Serious: No
  Sender: FDA-Public Use
  Company Number: US-BRISTOL-MYERS SQUIBB COMPANY-18920728

PATIENT
  Age: 80 Year
  Sex: Female
  Weight: 63.49 kg

DRUGS (14)
  1. SPRYCEL [Suspect]
     Indication: CHRONIC MYELOID LEUKAEMIA
     Route: 048
     Dates: start: 201007, end: 201008
  2. ZEGERID [Concomitant]
  3. XYZAL [Concomitant]
  4. VITAMIN D [Concomitant]
  5. TUMS [Concomitant]
  6. TOVIAZ [Concomitant]
  7. MULTIVITAMIN [Concomitant]
  8. LISINOPRIL [Concomitant]
  9. KLOR-CON [Concomitant]
  10. HYDROXYUREA [Concomitant]
  11. HCTZ + TRIAMTERENE [Concomitant]
  12. CITRUCEL [Concomitant]
  13. CARDIZEM [Concomitant]
  14. CALCIUM [Concomitant]

REACTIONS (2)
  - Rash [Recovering/Resolving]
  - Cough [Not Recovered/Not Resolved]
